FAERS Safety Report 22165555 (Version 1)
Quarter: 2023Q2

REPORT INFORMATION
  Report Type: Spontaneous
  Country: RU (occurrence: RU)
  Receive Date: 20230403
  Receipt Date: 20230403
  Transmission Date: 20230722
  Serious: Yes (Other)
  Sender: FDA-Public Use
  Company Number: RU-MYLANLABS-2023M1033866

PATIENT
  Age: 75 Year
  Sex: Female

DRUGS (1)
  1. XALATAN [Suspect]
     Active Substance: LATANOPROST
     Indication: Open angle glaucoma
     Dosage: UNK
     Route: 065
     Dates: start: 202302

REACTIONS (4)
  - Herpes ophthalmic [Unknown]
  - Erythema [Unknown]
  - Visual impairment [Unknown]
  - Intraocular pressure increased [Unknown]
